FAERS Safety Report 9103300 (Version 1)
Quarter: 2013Q1

REPORT INFORMATION
  Report Type: Spontaneous
  Country: MA (occurrence: MA)
  Receive Date: 20130219
  Receipt Date: 20130219
  Transmission Date: 20140127
  Serious: Yes (Hospitalization)
  Sender: FDA-Public Use
  Company Number: MA-ABBOTT-13P-110-1050738-00

PATIENT
  Age: 53 Year
  Sex: Female

DRUGS (1)
  1. SODIUM VALPROATE [Suspect]
     Indication: POST-TRAUMATIC EPILEPSY

REACTIONS (12)
  - Polyarthritis [Unknown]
  - Systemic lupus erythematosus [Unknown]
  - Decreased appetite [Unknown]
  - Muscular weakness [Unknown]
  - Fatigue [Unknown]
  - Lymphopenia [Unknown]
  - Red blood cell sedimentation rate abnormal [Unknown]
  - C-reactive protein increased [Unknown]
  - Antinuclear antibody positive [Unknown]
  - Pleural effusion [Unknown]
  - Lymphadenopathy [Unknown]
  - Oedema [Unknown]
